FAERS Safety Report 5466795-3 (Version None)
Quarter: 2007Q3

REPORT INFORMATION
  Report Type: 
  Country: None (occurrence: None)
  Receive Date: 20070924
  Receipt Date: 20070924
  Transmission Date: 20080115
  Serious: Yes (Other)
  Sender: FDA-Public Use
  Company Number: None

PATIENT
  Sex: Male
  Weight: 34.0198 kg

DRUGS (1)
  1. VANCOMYCIN [Suspect]
     Dosage: 250ML  Q 8 HOURS  IV
     Route: 042

REACTIONS (3)
  - PRURITUS [None]
  - RASH [None]
  - URTICARIA [None]
